FAERS Safety Report 8508914-8 (Version None)
Quarter: 2012Q3

REPORT INFORMATION
  Report Type: 
  Country: None (occurrence: None)
  Receive Date: 20120713
  Receipt Date: 20120705
  Transmission Date: 20120928
  Serious: Yes (Hospitalization)
  Sender: FDA-Public Use
  Company Number: US-ASTRAZENECA-2012SE34569

PATIENT
  Age: 47 Year
  Sex: Female
  Weight: 47.6 kg

DRUGS (4)
  1. SEROQUEL XR [Suspect]
     Indication: BIPOLAR DISORDER
     Route: 048
     Dates: start: 20070101
  2. FLUOXETINE HCL [Concomitant]
     Indication: BIPOLAR DISORDER
  3. LAMICTAL [Concomitant]
     Indication: BIPOLAR DISORDER
  4. GEODON [Concomitant]
     Indication: BIPOLAR DISORDER

REACTIONS (2)
  - DRUG DISPENSING ERROR [None]
  - TIBIA FRACTURE [None]
